FAERS Safety Report 22399747 (Version 1)
Quarter: 2023Q2

REPORT INFORMATION
  Report Type: Report from Study
  Country: US (occurrence: US)
  Receive Date: 20230602
  Receipt Date: 20230602
  Transmission Date: 20230721
  Serious: No
  Sender: FDA-Public Use
  Company Number: US-INCYTE CORPORATION-2023IN004310

PATIENT

DRUGS (2)
  1. JAKAFI [Suspect]
     Active Substance: RUXOLITINIB
     Indication: Polycythaemia vera
     Dosage: 5 MILLIGRAM, BID
     Route: 048
  2. JAKAFI [Suspect]
     Active Substance: RUXOLITINIB
     Dosage: 5MG 1 BY MOUTH TWICE DAILY MON-WED-FRI, ONCE DAILY EVERY OTHER DAYS
     Route: 048

REACTIONS (3)
  - Nasal dryness [Unknown]
  - Erythema [Unknown]
  - Inappropriate schedule of product administration [Unknown]
